FAERS Safety Report 19814422 (Version 1)
Quarter: 2021Q3

REPORT INFORMATION
  Report Type: Report from Study
  Country: US (occurrence: US)
  Receive Date: 20210910
  Receipt Date: 20210910
  Transmission Date: 20211014
  Serious: Yes (Other)
  Sender: FDA-Public Use
  Company Number: US-MYLANLABS-2021M1059523

PATIENT
  Sex: Female
  Weight: 73 kg

DRUGS (1)
  1. GLATIRAMER ACETATE INJECTION [Suspect]
     Active Substance: GLATIRAMER ACETATE
     Indication: MULTIPLE SCLEROSIS
     Dosage: 40 MILLIGRAM, 3XW
     Route: 065

REACTIONS (5)
  - Diplegia [Unknown]
  - Injection site mass [Unknown]
  - Injection site pain [Unknown]
  - Multiple sclerosis relapse [Unknown]
  - Injection site erythema [Unknown]
